FAERS Safety Report 11671128 (Version 1)
Quarter: 2015Q4

REPORT INFORMATION
  Report Type: Spontaneous
  Country: US (occurrence: US)
  Receive Date: 20151028
  Receipt Date: 20151028
  Transmission Date: 20160304
  Serious: Yes (Death)
  Sender: FDA-Public Use
  Company Number: US-NOVOPROD-467856

PATIENT
  Age: 90 Year

DRUGS (1)
  1. LEVEMIR [Suspect]
     Active Substance: INSULIN DETEMIR
     Indication: PRODUCT USED FOR UNKNOWN INDICATION
     Dosage: 80 UNITS
     Route: 065

REACTIONS (3)
  - Overdose [Unknown]
  - Drug prescribing error [Unknown]
  - Death [Fatal]
